FAERS Safety Report 14426062 (Version 2)
Quarter: 2018Q1

REPORT INFORMATION
  Report Type: Spontaneous
  Country: US (occurrence: US)
  Receive Date: 20180123
  Receipt Date: 20180126
  Transmission Date: 20180509
  Serious: No
  Sender: FDA-Public Use
  Company Number: US-VIFOR (INTERNATIONAL) INC.-VIT-2017-14467

PATIENT
  Age: 67 Year
  Sex: Female
  Weight: 67.5 kg

DRUGS (16)
  1. RENVELA [Concomitant]
     Active Substance: SEVELAMER CARBONATE
     Route: 048
     Dates: start: 20141001
  2. VENOFER [Suspect]
     Active Substance: IRON SUCROSE
     Indication: PRODUCT USED FOR UNKNOWN INDICATION
     Route: 040
     Dates: start: 20171204
  3. ACETYLSALICYLIC ACID [Concomitant]
     Active Substance: ASPIRIN
     Route: 048
     Dates: start: 20161226
  4. TRAMADOL. [Concomitant]
     Active Substance: TRAMADOL
     Route: 048
     Dates: start: 20161226
  5. CILOSTAZOL. [Concomitant]
     Active Substance: CILOSTAZOL
     Route: 048
     Dates: start: 20161226
  6. NOVOLIN 30R [Concomitant]
     Active Substance: INSULIN HUMAN
     Dosage: 15 UNITS EVERY DAY
     Route: 058
     Dates: start: 20110115
  7. SIMVASTATIN. [Concomitant]
     Active Substance: SIMVASTATIN
     Route: 048
     Dates: start: 20170405
  8. CLONAZEPAM. [Concomitant]
     Active Substance: CLONAZEPAM
     Route: 048
     Dates: start: 20141018
  9. ISOSORBIDE MONONITRATE. [Concomitant]
     Active Substance: ISOSORBIDE MONONITRATE
     Route: 048
     Dates: start: 20140211
  10. MIRCERA [Suspect]
     Active Substance: METHOXY POLYETHYLENE GLYCOL-EPOETIN BETA
     Indication: ANAEMIA
     Route: 040
     Dates: start: 20171214
  11. MIRCERA [Suspect]
     Active Substance: METHOXY POLYETHYLENE GLYCOL-EPOETIN BETA
     Route: 040
     Dates: start: 20171219
  12. LYRICA [Concomitant]
     Active Substance: PREGABALIN
     Route: 048
     Dates: start: 20161102
  13. VITAMINS NOS [Concomitant]
     Active Substance: VITAMINS
     Route: 048
     Dates: start: 20120628
  14. ZEMPLAR [Concomitant]
     Active Substance: PARICALCITOL
     Route: 040
     Dates: start: 20161229
  15. CILOSTAZOL. [Concomitant]
     Active Substance: CILOSTAZOL
     Route: 048
     Dates: start: 20140415
  16. METOPROLOL. [Concomitant]
     Active Substance: METOPROLOL
     Dosage: 15 UNITS EVERY DAY
     Route: 048
     Dates: start: 20110115

REACTIONS (1)
  - Medication error [Recovered/Resolved]

NARRATIVE: CASE EVENT DATE: 20171219
